FAERS Safety Report 14901812 (Version 8)
Quarter: 2019Q1

REPORT INFORMATION
  Report Type: Spontaneous
  Country: CA (occurrence: CA)
  Receive Date: 20180516
  Receipt Date: 20190129
  Transmission Date: 20190417
  Serious: Yes (Other)
  Sender: FDA-Public Use
  Company Number: CA-CELLTRION INC.-2018CA018307

PATIENT

DRUGS (12)
  1. INFLECTRA [Suspect]
     Active Substance: INFLIXIMAB-DYYB
     Dosage: 362.5 MG, CYCLIC (Q 0, 2, 6 WEEKS, THEN EVERY 8 WEEKS)
     Route: 042
     Dates: start: 20180210
  2. SPIRONOLACTONE. [Concomitant]
     Active Substance: SPIRONOLACTONE
     Dosage: 2 TABS DAILY PO
     Route: 048
     Dates: start: 2016
  3. INFLECTRA [Suspect]
     Active Substance: INFLIXIMAB-DYYB
     Indication: COLITIS ULCERATIVE
     Dosage: 362.5 MG, CYCLIC (Q 0, 2, 6 WEEKS, THEN EVERY 8 WEEKS)
     Route: 042
     Dates: start: 20180120
  4. INFLECTRA [Suspect]
     Active Substance: INFLIXIMAB-DYYB
     Dosage: 362.5 MG, CYCLIC (Q 0, 2, 6 WEEKS, THEN EVERY 8 WEEKS)
     Route: 042
     Dates: start: 20180310
  5. INFLECTRA [Suspect]
     Active Substance: INFLIXIMAB-DYYB
     Dosage: 400 MG, EVERY 0, 2, 6 WEEKS, THEN EVERY 4 WEEKS)
     Dates: start: 20181013
  6. INFLECTRA [Suspect]
     Active Substance: INFLIXIMAB-DYYB
     Dosage: 362.5 MG, CYCLIC (Q 0, 2, 6 WEEKS, THEN EVERY 8 WEEKS)
     Route: 042
     Dates: start: 20180505, end: 20180505
  7. INFLECTRA [Suspect]
     Active Substance: INFLIXIMAB-DYYB
     Dosage: 362.5 MG, CYCLIC (Q 0, 2, 6 WEEKS, THEN EVERY 8 WEEKS)
     Route: 042
     Dates: start: 20180623
  8. INFLECTRA [Suspect]
     Active Substance: INFLIXIMAB-DYYB
     Dosage: 400 MG, EVERY 0, 2, 6 WEEKS, THEN EVERY 4 WEEKS)
     Dates: start: 20180915
  9. INFLECTRA [Suspect]
     Active Substance: INFLIXIMAB-DYYB
     Dosage: UNK
     Route: 042
     Dates: start: 20181110
  10. INFLECTRA [Suspect]
     Active Substance: INFLIXIMAB-DYYB
     Dosage: 362.5 MG (INSTEAD OF A FIXED DOSE OF 400),, CYCLIC (Q 0, 2, 6 WEEKS, THEN EVERY 8 WEEKS)
     Route: 042
     Dates: start: 20180721
  11. PENTASA [Concomitant]
     Active Substance: MESALAMINE
     Dosage: 4 TABS BID (TWICE A DAY)
     Route: 048
     Dates: start: 1995
  12. VITAMIN D [Concomitant]
     Active Substance: CHOLECALCIFEROL
     Dosage: 1 TAB DAILY
     Route: 048

REACTIONS (14)
  - Haemorrhage [Unknown]
  - Fatigue [Unknown]
  - Infection [Recovered/Resolved]
  - Oropharyngeal pain [Not Recovered/Not Resolved]
  - Pharyngitis [Unknown]
  - Cough [Not Recovered/Not Resolved]
  - Product use issue [Unknown]
  - Drug ineffective [Recovering/Resolving]
  - Malaise [Not Recovered/Not Resolved]
  - Incorrect dose administered [Unknown]
  - Condition aggravated [Unknown]
  - Influenza like illness [Recovered/Resolved]
  - Pyrexia [Recovered/Resolved]
  - Pain [Unknown]

NARRATIVE: CASE EVENT DATE: 20180130
